FAERS Safety Report 18441201 (Version 1)
Quarter: 2020Q4

REPORT INFORMATION
  Report Type: Spontaneous
  Country: US (occurrence: US)
  Receive Date: 20201029
  Receipt Date: 20201029
  Transmission Date: 20210114
  Serious: Yes (Other)
  Sender: FDA-Public Use
  Company Number: US-TAKEDA-US202033900

PATIENT
  Sex: Female

DRUGS (8)
  1. GATTEX [Suspect]
     Active Substance: TEDUGLUTIDE\WATER
     Indication: SHORT-BOWEL SYNDROME
     Dosage: 0.2500 UNIT WAS NOT REPORTED
     Route: 065
     Dates: start: 20190223
  2. GATTEX [Suspect]
     Active Substance: TEDUGLUTIDE\WATER
     Dosage: 3.671 MILLIGRAM, 1X/DAY:QD
     Route: 058
     Dates: start: 201902
  3. GATTEX [Suspect]
     Active Substance: TEDUGLUTIDE\WATER
     Dosage: 3.671 MILLIGRAM, 1X/DAY:QD
     Route: 058
     Dates: start: 201902
  4. GATTEX [Suspect]
     Active Substance: TEDUGLUTIDE\WATER
     Indication: SHORT-BOWEL SYNDROME
     Dosage: 0.2500 UNIT WAS NOT REPORTED
     Route: 065
     Dates: start: 20190223
  5. GATTEX [Suspect]
     Active Substance: TEDUGLUTIDE\WATER
     Indication: SHORT-BOWEL SYNDROME
     Dosage: 0.2500 UNIT WAS NOT REPORTED
     Route: 065
     Dates: start: 20190223
  6. GATTEX [Suspect]
     Active Substance: TEDUGLUTIDE\WATER
     Dosage: 3.671 MILLIGRAM, 1X/DAY:QD
     Route: 058
     Dates: start: 201902
  7. GATTEX [Suspect]
     Active Substance: TEDUGLUTIDE\WATER
     Indication: SHORT-BOWEL SYNDROME
     Dosage: 0.2500 UNIT WAS NOT REPORTED
     Route: 065
     Dates: start: 20190223
  8. GATTEX [Suspect]
     Active Substance: TEDUGLUTIDE\WATER
     Dosage: 3.671 MILLIGRAM, 1X/DAY:QD
     Route: 058
     Dates: start: 201902

REACTIONS (1)
  - Hospice care [Not Recovered/Not Resolved]
